FAERS Safety Report 6112346-X (Version None)
Quarter: 2009Q1

REPORT INFORMATION
  Report Type: 
  Country: None (occurrence: None)
  Receive Date: 20090311
  Receipt Date: 20090311
  Transmission Date: 20090719
  Serious: Yes (Other)
  Sender: FDA-Public Use
  Company Number: None

PATIENT
  Age: 82 Year
  Sex: Male
  Weight: 61.2356 kg

DRUGS (1)
  1. CARTIA XT [Suspect]
     Indication: VENTRICULAR FIBRILLATION
     Dosage: 180 MG. 2 X DAY ORAL
     Route: 048
     Dates: start: 20081101

REACTIONS (7)
  - EATING DISORDER [None]
  - HYPOAESTHESIA [None]
  - HYPOAESTHESIA ORAL [None]
  - JOINT SWELLING [None]
  - LIP DRY [None]
  - MUSCLE SPASMS [None]
  - SPEECH DISORDER [None]
